FAERS Safety Report 9473304 (Version 2)
Quarter: 2013Q3

REPORT INFORMATION
  Report Type: Spontaneous
  Country: US (occurrence: US)
  Receive Date: 20130823
  Receipt Date: 20130823
  Transmission Date: 20140515
  Serious: Yes (Other)
  Sender: FDA-Public Use
  Company Number: US-BRISTOL-MYERS SQUIBB COMPANY-18871152

PATIENT
  Age: 66 Year
  Sex: Male

DRUGS (4)
  1. SPRYCEL [Suspect]
     Indication: CHRONIC MYELOID LEUKAEMIA
  2. PLAVIX [Suspect]
  3. NORVASC [Concomitant]
  4. PRILOSEC [Concomitant]

REACTIONS (1)
  - Gastrointestinal haemorrhage [Unknown]
